FAERS Safety Report 26156796 (Version 1)
Quarter: 2025Q4

REPORT INFORMATION
  Report Type: Spontaneous
  Country: EU (occurrence: EU)
  Receive Date: 20251215
  Receipt Date: 20251215
  Transmission Date: 20260117
  Serious: Yes (Life-Threatening)
  Sender: MERCK KGAA
  Company Number: None

PATIENT
  Age: 28 Year
  Sex: Female

DRUGS (1)
  1. LEVOTHYROXINE SODIUM [Suspect]
     Active Substance: LEVOTHYROXINE SODIUM
     Indication: Thyroid disorder
     Dosage: LEVOTHYROXINE TABLET 50UG (NATRIUM) TABLET, 50 UG (MICROGRAM),
     Dates: start: 20251024, end: 20251028

REACTIONS (1)
  - Epilepsy [Recovered/Resolved]
